FAERS Safety Report 8165611-9 (Version None)
Quarter: 2012Q1

REPORT INFORMATION
  Report Type: 
  Country: None (occurrence: None)
  Receive Date: 20120223
  Receipt Date: 20120223
  Transmission Date: 20120608
  Serious: Yes (Other)
  Sender: FDA-Public Use
  Company Number: None

PATIENT
  Sex: Female
  Weight: 95.2554 kg

DRUGS (2)
  1. FLUVOXAMINE MALEATE [Suspect]
  2. SERTRALINE HYDROCHLORIDE [Suspect]

REACTIONS (6)
  - ANXIETY [None]
  - TREMOR [None]
  - DYSKINESIA [None]
  - AGITATION [None]
  - SEROTONIN SYNDROME [None]
  - CONFUSIONAL STATE [None]
